FAERS Safety Report 7337835-1 (Version None)
Quarter: 2011Q1

REPORT INFORMATION
  Report Type: 
  Country: None (occurrence: None)
  Receive Date: 20110308
  Receipt Date: 20110120
  Transmission Date: 20110831
  Serious: Yes (Other)
  Sender: FDA-Public Use
  Company Number: US-BAYER-201038365NA

PATIENT
  Sex: Female
  Weight: 68.027 kg

DRUGS (4)
  1. YASMIN [Suspect]
     Indication: MENSTRUAL DISORDER
     Dosage: UNK
     Route: 048
     Dates: start: 20041207, end: 20070601
  2. IBUPROFEN [Concomitant]
     Indication: PAIN
     Dosage: 800 MG, UNK
     Dates: start: 20070323
  3. PROPRANOLOL [Concomitant]
     Indication: PRODUCT USED FOR UNKNOWN INDICATION
     Dosage: 120 MG, UNK
     Dates: start: 20070306
  4. YAZ [Suspect]
     Route: 048
     Dates: start: 20040601

REACTIONS (9)
  - DIPLOPIA [None]
  - WEIGHT INCREASED [None]
  - ARTHRALGIA [None]
  - HYPERTENSION [None]
  - PULMONARY EMBOLISM [None]
  - MONOPLEGIA [None]
  - HEADACHE [None]
  - HYPOAESTHESIA [None]
  - SCAR [None]
